FAERS Safety Report 7672468-9 (Version None)
Quarter: 2011Q3

REPORT INFORMATION
  Report Type: 
  Country: None (occurrence: None)
  Receive Date: 20110711
  Receipt Date: 20110411
  Transmission Date: 20111222
  Serious: Yes (Disabling, Other)
  Sender: FDA-Public Use
  Company Number: IPC201104-000606

PATIENT

DRUGS (3)
  1. REGLAN [Suspect]
     Dates: start: 20060101, end: 20080101
  2. METOCLOPRAMIDE HYDROCHLORIDE [Suspect]
     Dosage: SYRUP, ORAL
     Route: 048
     Dates: start: 20060101, end: 20080101
  3. METOCLOPRAMIDE HYDROCHLORIDE [Suspect]
     Dosage: SYRUP, ORAL
     Route: 048
     Dates: start: 20081101, end: 20090326

REACTIONS (3)
  - TARDIVE DYSKINESIA [None]
  - MOVEMENT DISORDER [None]
  - EXTRAPYRAMIDAL DISORDER [None]
